FAERS Safety Report 14424358 (Version 1)
Quarter: 2018Q1

REPORT INFORMATION
  Report Type: Spontaneous
  Country: US (occurrence: US)
  Receive Date: 20180123
  Receipt Date: 20180123
  Transmission Date: 20180509
  Serious: Yes (Other)
  Sender: FDA-Public Use
  Company Number: US-BAYER-2018-014258

PATIENT
  Sex: Female

DRUGS (1)
  1. GADAVIST [Suspect]
     Active Substance: GADOBUTROL
     Indication: NUCLEAR MAGNETIC RESONANCE IMAGING
     Dosage: 1 MMOL/ML, ONCE
     Route: 042
     Dates: start: 20180122, end: 20180122

REACTIONS (3)
  - Contrast media allergy [None]
  - Respiratory distress [None]
  - Rash [None]

NARRATIVE: CASE EVENT DATE: 20180122
